FAERS Safety Report 23133955 (Version 1)
Quarter: 2023Q4

REPORT INFORMATION
  Report Type: Report from Study
  Country: MX (occurrence: MX)
  Receive Date: 20231101
  Receipt Date: 20231101
  Transmission Date: 20240110
  Serious: Yes (Other)
  Sender: FDA-Public Use
  Company Number: MX-002147023-NVSC2023MX173391

PATIENT
  Sex: Female

DRUGS (1)
  1. KISQALI [Suspect]
     Active Substance: RIBOCICLIB
     Indication: Breast cancer
     Dosage: UNK
     Route: 048

REACTIONS (16)
  - Metastases to bone [Unknown]
  - Emotional disorder [Unknown]
  - Crying [Unknown]
  - Muscular weakness [Unknown]
  - Limb discomfort [Unknown]
  - Abdominal distension [Unknown]
  - Pain [Unknown]
  - Fear [Unknown]
  - Head discomfort [Unknown]
  - Anxiety [Unknown]
  - Tachycardia [Unknown]
  - Palpitations [Unknown]
  - Constipation [Unknown]
  - Fatigue [Unknown]
  - Heart rate increased [Unknown]
  - Gastritis [Not Recovered/Not Resolved]
